FAERS Safety Report 19741627 (Version 5)
Quarter: 2021Q4

REPORT INFORMATION
  Report Type: Spontaneous
  Country: US (occurrence: US)
  Receive Date: 20210824
  Receipt Date: 20211203
  Transmission Date: 20220303
  Serious: Yes (Hospitalization, Other)
  Sender: FDA-Public Use
  Company Number: US-SA-SAC20210820000993

PATIENT
  Age: 53 Year
  Sex: Female

DRUGS (2)
  1. AUBAGIO [Suspect]
     Active Substance: TERIFLUNOMIDE
     Indication: Multiple sclerosis
     Dosage: 14 MG, QD
     Route: 048
     Dates: start: 20190321
  2. LASIX [Suspect]
     Active Substance: FUROSEMIDE
     Dosage: UNK

REACTIONS (7)
  - Fall [Unknown]
  - Multiple sclerosis relapse [Unknown]
  - Multiple sclerosis [Unknown]
  - Confusional state [Unknown]
  - Head injury [Unknown]
  - Limb discomfort [Unknown]
  - Blood magnesium decreased [Unknown]

NARRATIVE: CASE EVENT DATE: 20210701
